FAERS Safety Report 6501683-2 (Version None)
Quarter: 2009Q4

REPORT INFORMATION
  Report Type: 
  Country: None (occurrence: None)
  Receive Date: 20091216
  Receipt Date: 20091209
  Transmission Date: 20100525
  Serious: Yes (Hospitalization)
  Sender: FDA-Public Use
  Company Number: DE-TEVA-217575ISR

PATIENT
  Sex: Male
  Weight: 74 kg

DRUGS (2)
  1. CYCLOSPORINE [Suspect]
     Indication: WEGENER'S GRANULOMATOSIS
     Route: 048
  2. CYCLOSPORINE [Suspect]
     Route: 048

REACTIONS (3)
  - ARTHRITIS [None]
  - IMMOBILE [None]
  - MYALGIA [None]
